FAERS Safety Report 21859330 (Version 1)
Quarter: 2023Q1

REPORT INFORMATION
  Report Type: Report from Study
  Country: US (occurrence: US)
  Receive Date: 20230113
  Receipt Date: 20230113
  Transmission Date: 20230418
  Serious: No
  Sender: FDA-Public Use
  Company Number: US-ABBVIE-4236953

PATIENT
  Sex: Male

DRUGS (1)
  1. HUMIRA [Suspect]
     Active Substance: ADALIMUMAB
     Indication: Psoriasis
     Route: 058

REACTIONS (6)
  - Arthralgia [Recovering/Resolving]
  - Injection site swelling [Recovering/Resolving]
  - Rash [Recovering/Resolving]
  - Skin exfoliation [Unknown]
  - Pain of skin [Unknown]
  - Erythema [Unknown]
